FAERS Safety Report 7226577-9 (Version None)
Quarter: 2011Q1

REPORT INFORMATION
  Report Type: 
  Country: None (occurrence: None)
  Receive Date: 20110114
  Receipt Date: 20101216
  Transmission Date: 20110831
  Serious: Yes (Hospitalization)
  Sender: FDA-Public Use
  Company Number: US-BAYER-201013419NA

PATIENT
  Sex: Female
  Weight: 86.364 kg

DRUGS (30)
  1. OCELLA [Suspect]
     Indication: CONTRACEPTION
     Route: 048
     Dates: start: 20081024, end: 20090227
  2. AMBIEN [Concomitant]
  3. OXYCODONE HCL AND ACETAMINOPHEN [Concomitant]
  4. ELAVIL [Concomitant]
  5. YASMIN [Suspect]
     Indication: CONTRACEPTION
     Route: 048
     Dates: start: 20080926, end: 20081024
  6. METHOTREXATE [Concomitant]
  7. PRENATAL VITAMINS [Concomitant]
  8. VENTOLIN [Concomitant]
  9. SINGULAIR [Concomitant]
  10. HYDROMORPHONE HCL [Concomitant]
  11. TOPAMAX [Concomitant]
  12. ZOFRAN [Concomitant]
  13. YAZ [Suspect]
  14. VERAPAMIL [Concomitant]
  15. DEMEROL [Concomitant]
  16. AMITRIPTYLINE [Concomitant]
  17. FOLIC ACID [Concomitant]
  18. RITUXAN [Concomitant]
  19. VANCOMYCIN [Concomitant]
  20. DILAUDID [Concomitant]
  21. REQUIP [Concomitant]
  22. PROMETHAZINE [Concomitant]
  23. EFFEXOR XR [Concomitant]
  24. ARIXTRA [Concomitant]
  25. POTASSIUM [Concomitant]
  26. BROMFENAC [Concomitant]
  27. PERCOCET [Concomitant]
  28. ERYTHROMYCIN [Concomitant]
     Indication: GASTROINTESTINAL MOTILITY DISORDER
  29. BENADRYL [Concomitant]
  30. OXYCET [Concomitant]

REACTIONS (8)
  - SUBCLAVIAN VEIN THROMBOSIS [None]
  - GALLBLADDER CHOLESTEROLOSIS [None]
  - PAIN IN EXTREMITY [None]
  - DEVICE RELATED INFECTION [None]
  - CHOLECYSTITIS CHRONIC [None]
  - ABDOMINAL PAIN UPPER [None]
  - NAUSEA [None]
  - VOMITING [None]
